FAERS Safety Report 6690924-7 (Version None)
Quarter: 2010Q2

REPORT INFORMATION
  Report Type: 
  Country: None (occurrence: None)
  Receive Date: 20100421
  Receipt Date: 20100409
  Transmission Date: 20101027
  Serious: Yes (Other)
  Sender: FDA-Public Use
  Company Number: US-ROCHE-698268

PATIENT
  Sex: Female

DRUGS (5)
  1. ACTEMRA [Suspect]
     Indication: RHEUMATOID ARTHRITIS
     Dosage: FORM: INFUSION. THE PATIENT RECEIVED THE SECOND INFUSION OF ACTEMRA ON 7 APRIL 2010.
     Route: 042
     Dates: start: 20100310
  2. ZOLOFT [Concomitant]
     Indication: DEPRESSION
  3. ATENOLOL [Concomitant]
  4. ZOCOR [Concomitant]
  5. TYLENOL-500 [Concomitant]
     Indication: PAIN

REACTIONS (1)
  - RHEUMATOID ARTHRITIS [None]
